FAERS Safety Report 12120583 (Version 1)
Quarter: 2016Q1

REPORT INFORMATION
  Report Type: Spontaneous
  Country: None (occurrence: US)
  Receive Date: 20160226
  Receipt Date: 20160226
  Transmission Date: 20160526
  Serious: No
  Sender: FDA-Public Use
  Company Number: US-ALLERGAN-1407500US

PATIENT
  Age: 73 Year
  Sex: Female

DRUGS (5)
  1. ATROPINE. [Concomitant]
     Active Substance: ATROPINE
     Indication: CATARACT OPERATION
  2. REFRESH OPTIVE SENSITIVE [Suspect]
     Active Substance: CARBOXYMETHYLCELLULOSE SODIUM\GLYCERIN
     Indication: CATARACT OPERATION
     Dosage: UNK UNK, SINGLE
     Route: 047
     Dates: start: 20140410, end: 20140410
  3. OFLOXACIN. [Concomitant]
     Active Substance: OFLOXACIN
     Indication: CATARACT OPERATION
  4. KETOROLAC [Concomitant]
     Active Substance: KETOROLAC\KETOROLAC TROMETHAMINE
     Indication: CATARACT OPERATION
  5. PREDNISOLONE. [Concomitant]
     Active Substance: PREDNISOLONE
     Indication: CATARACT OPERATION

REACTIONS (3)
  - Headache [Recovered/Resolved]
  - Eye pain [Recovered/Resolved]
  - Eye irritation [Recovered/Resolved]
